FAERS Safety Report 4300099-7 (Version None)
Quarter: 2004Q1

REPORT INFORMATION
  Report Type: 
  Country: None (occurrence: None)
  Receive Date: 20040219
  Receipt Date: 20040219
  Transmission Date: 20041129
  Serious: Yes (Hospitalization)
  Sender: FDA-Public Use
  Company Number: None

PATIENT
  Age: 55 Year
  Sex: Male
  Weight: 45.5 kg

DRUGS (4)
  1. DILANTIN [Suspect]
     Indication: CONVULSION
     Dosage: 1 BID AND 2 QHS
  2. AUGMENTIN [Concomitant]
  3. CLONIDINE [Concomitant]
  4. PREDNISONE [Concomitant]

REACTIONS (6)
  - ALCOHOL WITHDRAWAL SYNDROME [None]
  - CONVULSION [None]
  - DRUG LEVEL INCREASED [None]
  - DYSARTHRIA [None]
  - MENTAL STATUS CHANGES [None]
  - NYSTAGMUS [None]
